FAERS Safety Report 7681591-4 (Version None)
Quarter: 2011Q3

REPORT INFORMATION
  Report Type: 
  Country: None (occurrence: None)
  Receive Date: 20110812
  Receipt Date: 20110801
  Transmission Date: 20111222
  Serious: Yes (Hospitalization)
  Sender: FDA-Public Use
  Company Number: PHHY2011BR69718

PATIENT
  Sex: Male

DRUGS (1)
  1. FORMOTEROL FUMARATE [Suspect]
     Indication: LUNG DISORDER
     Dosage: UNK UKN, UNK

REACTIONS (3)
  - FEMUR FRACTURE [None]
  - DIZZINESS [None]
  - DYSPNOEA [None]
